FAERS Safety Report 7389216-2 (Version None)
Quarter: 2011Q1

REPORT INFORMATION
  Report Type: 
  Country: None (occurrence: None)
  Receive Date: 20110329
  Receipt Date: 20110329
  Transmission Date: 20110831
  Serious: Yes (Disabling, Other)
  Sender: FDA-Public Use
  Company Number: None

PATIENT
  Sex: Female
  Weight: 68.0396 kg

DRUGS (1)
  1. PROTONIX [Suspect]
     Indication: ULCER
     Dosage: 40 MG 2 X DAY
     Dates: start: 20101201, end: 20110201

REACTIONS (1)
  - BONE PAIN [None]
